FAERS Safety Report 20216235 (Version 1)
Quarter: 2021Q4

REPORT INFORMATION
  Report Type: Spontaneous
  Country: US (occurrence: None)
  Receive Date: 20211221
  Receipt Date: 20211221
  Transmission Date: 20220303
  Serious: No
  Sender: FDA-Public Use
  Company Number: None

PATIENT
  Age: 35 Year
  Sex: Female
  Weight: 81 kg

DRUGS (1)
  1. CASIRIVIMAB\IMDEVIMAB [Suspect]
     Active Substance: CASIRIVIMAB\IMDEVIMAB
     Indication: SARS-CoV-2 test positive
     Dates: start: 20211217, end: 20211217

REACTIONS (10)
  - Fatigue [None]
  - Malaise [None]
  - Dizziness [None]
  - COVID-19 [None]
  - Chest discomfort [None]
  - Gait disturbance [None]
  - Heart rate increased [None]
  - Dysstasia [None]
  - Infusion related reaction [None]
  - Drug hypersensitivity [None]

NARRATIVE: CASE EVENT DATE: 20211217
